FAERS Safety Report 5708549-6 (Version None)
Quarter: 2008Q2

REPORT INFORMATION
  Report Type: 
  Country: None (occurrence: None)
  Receive Date: 20080417
  Receipt Date: 20080411
  Transmission Date: 20081010
  Serious: Yes (Death)
  Sender: FDA-Public Use
  Company Number: PHBS2008PH03361

PATIENT
  Age: 48 Year
  Sex: Male

DRUGS (4)
  1. EXJADE [Suspect]
     Indication: SERUM FERRITIN INCREASED
     Dosage: 500 MG/DAY
     Route: 048
     Dates: start: 20071001
  2. URSO FALK [Concomitant]
  3. HUMULIN R [Concomitant]
  4. INDERAL [Concomitant]

REACTIONS (4)
  - CARDIAC ARREST [None]
  - CONVULSION [None]
  - HAEMORRHAGE INTRACRANIAL [None]
  - THROMBOCYTOPENIA [None]
